FAERS Safety Report 5480307-X (Version None)
Quarter: 2007Q3

REPORT INFORMATION
  Report Type: 
  Country: None (occurrence: None)
  Receive Date: 20070913
  Receipt Date: 20070219
  Transmission Date: 20080115
  Serious: Yes (Other)
  Sender: FDA-Public Use
  Company Number: PHEH2007US02194

PATIENT
  Sex: Male

DRUGS (2)
  1. DIOVAN [Suspect]
     Indication: HYPERTENSION
     Dosage: 80 MG, QD, ORAL; 160 MG, QD, ORAL; 320 MG, QD, ORAL
     Route: 048
     Dates: start: 20040101
  2. DIOVAN [Suspect]
     Indication: HYPERTENSION
     Dosage: 80 MG, QD, ORAL; 160 MG, QD, ORAL; 320 MG, QD, ORAL
     Route: 048
     Dates: start: 20070216

REACTIONS (7)
  - ANGIOEDEMA [None]
  - BLOOD PRESSURE INCREASED [None]
  - BLOOD PRESSURE SYSTOLIC INCREASED [None]
  - DYSPNOEA [None]
  - NAUSEA [None]
  - PHARYNGEAL OEDEMA [None]
  - VOMITING [None]
